FAERS Safety Report 17955134 (Version 3)
Quarter: 2020Q3

REPORT INFORMATION
  Report Type: Spontaneous
  Country: IT (occurrence: IT)
  Receive Date: 20200629
  Receipt Date: 20200714
  Transmission Date: 20201103
  Serious: Yes (Hospitalization)
  Sender: FDA-Public Use
  Company Number: NVSC2020IT123381

PATIENT
  Age: 38 Year
  Sex: Female

DRUGS (10)
  1. PREDNISONE. [Suspect]
     Active Substance: PREDNISONE
     Dosage: 25 MILLIGRAM DAILY;
     Route: 065
  2. COLECALCIFEROL [Suspect]
     Active Substance: CHOLECALCIFEROL
     Indication: GASTROENTERITIS EOSINOPHILIC
     Dosage: 1 DF, QD
     Route: 065
  3. PREDNISONE. [Suspect]
     Active Substance: PREDNISONE
     Dosage: 37.5 MG, QD
     Route: 065
  4. LACTIS FERMENTA [Suspect]
     Active Substance: LACTOBACILLUS ACIDOPHILUS
     Indication: VAGINAL DISCHARGE
     Dosage: 50 MG, QD
     Route: 065
  5. AZATHIOPRINE. [Suspect]
     Active Substance: AZATHIOPRINE
     Indication: GASTROENTERITIS EOSINOPHILIC
     Dosage: 50 MG, QD
     Route: 065
  6. DEQUALINIUM CHLORIDE [Suspect]
     Active Substance: DEQUALINIUM CHLORIDE
     Indication: VAGINAL DISCHARGE
     Dosage: UNK
     Route: 065
  7. PREDNISONE. [Suspect]
     Active Substance: PREDNISONE
     Indication: GASTROENTERITIS EOSINOPHILIC
     Dosage: 50 MG
     Route: 065
  8. PREDNISONE. [Suspect]
     Active Substance: PREDNISONE
     Dosage: 5 MG
     Route: 065
  9. PREDNISONE. [Suspect]
     Active Substance: PREDNISONE
     Dosage: 25 MG, QD
     Route: 065
  10. PROGESTERONE. [Suspect]
     Active Substance: PROGESTERONE
     Indication: VAGINAL HAEMORRHAGE
     Dosage: UNK (UNTIL 17 WEEKS)
     Route: 067

REACTIONS (8)
  - Normal newborn [Unknown]
  - Premature delivery [Unknown]
  - Drug ineffective [Unknown]
  - Hepatitis cholestatic [Unknown]
  - Product use in unapproved indication [Unknown]
  - Off label use [Unknown]
  - Maternal exposure during pregnancy [Unknown]
  - Premature labour [Unknown]
